FAERS Safety Report 7907123-0 (Version None)
Quarter: 2011Q4

REPORT INFORMATION
  Report Type: 
  Country: None (occurrence: None)
  Receive Date: 20111110
  Receipt Date: 20110818
  Transmission Date: 20120403
  Serious: No
  Sender: FDA-Public Use
  Company Number: US-ASTRAZENECA-2011SE49595

PATIENT
  Age: 73 Year
  Sex: Female
  Weight: 54.4 kg

DRUGS (2)
  1. HYDROCHLOROTHIAZIDE [Concomitant]
     Indication: HYPERTENSION
  2. ZESTRIL [Suspect]
     Indication: HYPERTENSION
     Route: 048
     Dates: start: 20110801

REACTIONS (3)
  - DYSSTASIA [None]
  - BALANCE DISORDER [None]
  - GAIT DISTURBANCE [None]
